FAERS Safety Report 11287908 (Version 2)
Quarter: 2015Q3

REPORT INFORMATION
  Report Type: Spontaneous
  Country: US (occurrence: US)
  Receive Date: 20150721
  Receipt Date: 20150902
  Transmission Date: 20151125
  Serious: Yes (Other)
  Sender: FDA-Public Use
  Company Number: US-PFIZER INC-2015234796

PATIENT
  Age: 84 Year
  Sex: Female
  Weight: 85.26 kg

DRUGS (1)
  1. IBRANCE [Suspect]
     Active Substance: PALBOCICLIB
     Indication: BREAST CANCER STAGE IV
     Dosage: 100 MG, CYCLIC (DAY 1-21 Q 28 DAYS)
     Route: 048
     Dates: start: 20150622

REACTIONS (5)
  - Abdominal discomfort [Unknown]
  - Fatigue [Unknown]
  - Urinary tract infection [Unknown]
  - Constipation [Unknown]
  - Tumour marker increased [Unknown]
